FAERS Safety Report 9881804 (Version 2)
Quarter: 2014Q1

REPORT INFORMATION
  Report Type: Spontaneous
  Country: DE (occurrence: DE)
  Receive Date: 20140207
  Receipt Date: 20140207
  Transmission Date: 20141002
  Serious: Yes (Disabling, Other)
  Sender: FDA-Public Use
  Company Number: DE-SA-2014SA005340

PATIENT
  Age: 34 Year
  Sex: Female
  Weight: 53 kg

DRUGS (4)
  1. AUBAGIO [Suspect]
     Indication: RELAPSING-REMITTING MULTIPLE SCLEROSIS
     Route: 048
     Dates: start: 20131027
  2. L-THYROXIN [Concomitant]
     Indication: HYPOTHYROIDISM
     Route: 048
     Dates: start: 201106
  3. ALL OTHER THERAPEUTIC PRODUCTS [Concomitant]
  4. COLOSTRUM [Concomitant]
     Dosage: ^1 TEA SPOON^
     Route: 048
     Dates: start: 201301

REACTIONS (5)
  - Panic attack [Recovering/Resolving]
  - Anxiety [Recovered/Resolved]
  - Restlessness [Recovered/Resolved]
  - Leukopenia [Unknown]
  - Lymphopenia [Unknown]
